FAERS Safety Report 9283186 (Version 1)
Quarter: 2013Q2

REPORT INFORMATION
  Report Type: Spontaneous
  Country: US (occurrence: US)
  Receive Date: 20130510
  Receipt Date: 20130510
  Transmission Date: 20140414
  Serious: No
  Sender: FDA-Public Use
  Company Number: US-GLAXOSMITHKLINE-A0986364A

PATIENT
  Age: 87 Year
  Sex: Female
  Weight: 70.5 kg

DRUGS (8)
  1. TYKERB [Suspect]
     Indication: NEOPLASM MALIGNANT
     Dosage: 4TAB UNKNOWN
     Route: 048
     Dates: start: 201207
  2. SIMVASTATIN [Concomitant]
  3. NORVASC [Concomitant]
  4. METOPROLOL XL [Concomitant]
     Dosage: 25MG PER DAY
  5. ASPIRIN [Concomitant]
  6. DIOVAN [Concomitant]
     Dosage: 40MG PER DAY
  7. MULTIVITAMIN [Concomitant]
     Dosage: 1TAB PER DAY
  8. ERGOCALCIFEROL [Concomitant]
     Dosage: 1CAP WEEKLY

REACTIONS (3)
  - Vomiting [Recovered/Resolved]
  - Nausea [Recovered/Resolved]
  - Diarrhoea [Recovered/Resolved]
